FAERS Safety Report 12572335 (Version 2)
Quarter: 2016Q3

REPORT INFORMATION
  Report Type: Spontaneous
  Country: US (occurrence: US)
  Receive Date: 20160719
  Receipt Date: 20160804
  Transmission Date: 20161109
  Serious: Yes (Life-Threatening, Hospitalization, Other)
  Sender: FDA-Public Use
  Company Number: US-GILEAD-2016-0224135

PATIENT
  Age: 62 Year
  Sex: Male
  Weight: 62.59 kg

DRUGS (5)
  1. OXYCODONE [Concomitant]
     Active Substance: OXYCODONE
     Dosage: 5 MG, UNK
     Route: 048
  2. RIBAVIRIN. [Concomitant]
     Active Substance: RIBAVIRIN
     Dosage: 1000 MG, UNK
     Route: 048
     Dates: start: 20160527
  3. RIBAVIRIN. [Concomitant]
     Active Substance: RIBAVIRIN
     Dosage: 800 MG, UNK
     Route: 048
     Dates: start: 20160614
  4. PAROXETINE. [Concomitant]
     Active Substance: PAROXETINE
     Dosage: 10 MG, UNK
     Route: 048
  5. SOVALDI [Suspect]
     Active Substance: SOFOSBUVIR
     Indication: CHRONIC HEPATITIS C
     Dosage: 400 MG, UNK
     Route: 048
     Dates: start: 20160527, end: 20160701

REACTIONS (2)
  - Suicide attempt [Not Recovered/Not Resolved]
  - Drug dose omission [Unknown]

NARRATIVE: CASE EVENT DATE: 20160707
